FAERS Safety Report 8971318 (Version 2)
Quarter: 2012Q4

REPORT INFORMATION
  Report Type: 
  Country: CA (occurrence: CA)
  Receive Date: 20121217
  Receipt Date: 20121220
  Transmission Date: 20130627
  Serious: Yes (Death, Other)
  Sender: FDA-Public Use
  Company Number: PHHY2012CA099490

PATIENT
  Sex: Male

DRUGS (1)
  1. SANDOSTATIN LAR [Suspect]
     Indication: CARCINOID TUMOUR
     Dosage: 20 mg, Every 4 weeks
     Route: 030
     Dates: start: 20121001, end: 20121001

REACTIONS (3)
  - Malignant neoplasm progression [Fatal]
  - Nausea [Unknown]
  - Vomiting [Unknown]
